FAERS Safety Report 7954915-8 (Version None)
Quarter: 2011Q4

REPORT INFORMATION
  Report Type: 
  Country: None (occurrence: None)
  Receive Date: 20111202
  Receipt Date: 20111130
  Transmission Date: 20120403
  Serious: Yes (Other)
  Sender: FDA-Public Use
  Company Number: US-BAYER-2011-112976

PATIENT
  Age: 64 Year
  Sex: Female

DRUGS (6)
  1. NEXAVAR [Suspect]
     Indication: RENAL CELL CARCINOMA
     Dosage: 400 MG EVERY A.M.
     Route: 048
     Dates: start: 20111101, end: 20111128
  2. SUTENT [Concomitant]
     Route: 048
  3. ADVAIR DISKUS 100/50 [Concomitant]
     Route: 055
  4. TEMSIROLIMUS [Concomitant]
     Route: 042
  5. AVASTIN [Concomitant]
     Route: 042
  6. PAZOPANIB [Concomitant]

REACTIONS (6)
  - GLOSSODYNIA [None]
  - SWOLLEN TONGUE [None]
  - DYSPHONIA [None]
  - URINARY TRACT INFECTION [None]
  - OROPHARYNGEAL BLISTERING [None]
  - TONGUE DISCOLOURATION [None]
